FAERS Safety Report 7533087-8 (Version None)
Quarter: 2011Q2

REPORT INFORMATION
  Report Type: 
  Country: None (occurrence: None)
  Receive Date: 20110608
  Receipt Date: 20110531
  Transmission Date: 20111010
  Serious: Yes (Other)
  Sender: FDA-Public Use
  Company Number: US-PFIZER INC-2011070645

PATIENT
  Sex: Female

DRUGS (26)
  1. MYLOTARG [Suspect]
     Dosage: 5.2 MG, DAY 6
     Route: 042
     Dates: start: 20110429, end: 20110429
  2. METRONIDAZOLE HYDROCHLORIDE [Concomitant]
     Dosage: 1500MG PER DAY
     Route: 042
     Dates: start: 20110405
  3. POSACONAZOLE [Concomitant]
     Dosage: 600 MG, 1X/DAY
     Route: 048
  4. POTASSIUM CHLORIDE [Concomitant]
     Dosage: 20MG  X 1 DOSE
     Dates: start: 20110407, end: 20110407
  5. CEFEPIME [Concomitant]
     Dosage: 6 G, DAILY
  6. DOCUSATE [Concomitant]
     Dosage: 100MG OR 200MG DAILY
     Route: 048
  7. PANTOPRAZOLE [Concomitant]
     Dosage: 40 MG, 1X/DAY
  8. VANCOMYCIN HYDROCHLORIDE [Concomitant]
     Dosage: 2GM DAIILY
     Route: 042
  9. ALTEPLASE [Suspect]
  10. HYDROMORPHONE HCL [Suspect]
     Dosage: 11MG TO 14 MG DAILY BETWEEN
     Route: 042
     Dates: end: 20110407
  11. DRONABINOL [Concomitant]
     Dosage: 2.5 MG OR 5MG AS NEEDED
  12. PAROXETINE [Concomitant]
     Dosage: 10 MG, 1X/DAY
  13. ZOFRAN [Concomitant]
     Dosage: 8 MG, UNK
     Route: 042
     Dates: start: 20110404, end: 20110407
  14. ZYLOPRIM [Concomitant]
     Dosage: 300 MG, 1X/DAY
  15. METRONIDAZOLE HYDROCHLORIDE [Concomitant]
     Dosage: 1000 MG PER DAY
     Dates: start: 20110404, end: 20110404
  16. DOXYCYCLINE [Concomitant]
     Dosage: 100MG X 1
     Dates: start: 20110404, end: 20110404
  17. VALTREX [Concomitant]
     Dosage: 2000 MG, 1X/DAY
     Route: 048
  18. MYLOTARG [Suspect]
     Indication: ACUTE MYELOID LEUKAEMIA
     Dosage: 5.2 MG,DAY 6
     Route: 042
     Dates: start: 20110412, end: 20110412
  19. DURAGESIC-100 [Concomitant]
     Dosage: 100 MCG EVERY 72 HOURS
  20. DIPHENHYDRAMINE [Concomitant]
     Dosage: 25 MG DAILY
     Route: 048
  21. AZACITIDINE [Concomitant]
     Indication: ACUTE MYELOID LEUKAEMIA
     Dosage: 170+
     Route: 042
     Dates: end: 20110407
  22. TYLENOL-500 [Concomitant]
     Indication: PYREXIA
     Dosage: 650MG TO 1150MG AS NEEDED
     Route: 048
     Dates: start: 20110404, end: 20110404
  23. AMICAR [Concomitant]
     Dosage: 2000 MG, 1X/DAY
     Route: 048
  24. PHYTONADIONE [Suspect]
     Dosage: 10MG  AS NEEDED
     Route: 058
  25. URSODIOL [Concomitant]
     Dosage: 900 MG, 1X/DAY
  26. BENADRYL [Concomitant]
     Dosage: UNK
     Dates: start: 20110407, end: 20110407

REACTIONS (6)
  - ACUTE MYELOID LEUKAEMIA [None]
  - BONE MARROW TRANSPLANT [None]
  - BLOOD GLUCOSE INCREASED [None]
  - DISEASE RECURRENCE [None]
  - ANAL FISTULA [None]
  - FEBRILE NEUTROPENIA [None]
